APPROVED DRUG PRODUCT: ZYVOX
Active Ingredient: LINEZOLID
Strength: 100MG/5ML
Dosage Form/Route: FOR SUSPENSION;ORAL
Application: N021132 | Product #001 | TE Code: AB
Applicant: PFIZER INC
Approved: Apr 18, 2000 | RLD: Yes | RS: Yes | Type: RX